FAERS Safety Report 8472141-3 (Version None)
Quarter: 2012Q2

REPORT INFORMATION
  Report Type: 
  Country: None (occurrence: None)
  Receive Date: 20120627
  Receipt Date: 20120620
  Transmission Date: 20120825
  Serious: Yes (Death, Other)
  Sender: FDA-Public Use
  Company Number: US-ALEXION-A201201217

PATIENT
  Sex: Female

DRUGS (1)
  1. SOLIRIS [Suspect]
     Indication: HAEMOLYTIC URAEMIC SYNDROME
     Dosage: UNK
     Route: 042
     Dates: start: 20120609, end: 20120619

REACTIONS (4)
  - UNRESPONSIVE TO STIMULI [None]
  - DYSPNOEA [None]
  - EMBOLIC STROKE [None]
  - CYANOSIS [None]
